FAERS Safety Report 6277334-1 (Version None)
Quarter: 2009Q3

REPORT INFORMATION
  Report Type: 
  Country: None (occurrence: None)
  Receive Date: 20090722
  Receipt Date: 20090410
  Transmission Date: 20100115
  Serious: Yes (Hospitalization)
  Sender: FDA-Public Use
  Company Number: US-BRISTOL-MYERS SQUIBB COMPANY-14582837

PATIENT
  Age: 69 Year
  Sex: Female
  Weight: 79 kg

DRUGS (14)
  1. COUMADIN [Suspect]
     Dosage: INITIATED AT 5MG AND BEEN TITRATED TO 10MG.CURRENT DOSE 8MG
  2. TYLENOL (CAPLET) [Concomitant]
     Dosage: Q4H.
     Route: 048
  3. BACLOFEN [Concomitant]
     Route: 048
  4. CALCIUM CARBONATE [Concomitant]
     Route: 048
  5. DOCUSATE SODIUM [Concomitant]
     Route: 048
  6. PROZAC [Concomitant]
     Route: 048
  7. GABAPENTIN [Concomitant]
     Route: 048
  8. LORATADINE [Concomitant]
     Route: 048
  9. MORPHINE SULFATE [Concomitant]
     Route: 048
  10. MORPHINE [Concomitant]
     Route: 048
  11. PROTONIX [Concomitant]
     Route: 048
  12. SENNA [Concomitant]
     Dosage: DOSAGE FORM=TABS
     Route: 048
  13. NYSTATIN [Concomitant]
     Route: 061
  14. LOVENOX [Concomitant]
     Route: 058

REACTIONS (1)
  - INTERNATIONAL NORMALISED RATIO DECREASED [None]
